FAERS Safety Report 20722001 (Version 1)
Quarter: 2022Q2

REPORT INFORMATION
  Report Type: Spontaneous
  Country: US (occurrence: US)
  Receive Date: 20220418
  Receipt Date: 20220418
  Transmission Date: 20220721
  Serious: No
  Sender: FDA-Public Use
  Company Number: US-PFIZER INC-202101116472

PATIENT
  Sex: Female

DRUGS (2)
  1. EUCRISA [Suspect]
     Active Substance: CRISABOROLE
     Indication: Dermatitis
     Dosage: UNK
     Dates: start: 202010
  2. EUCRISA [Suspect]
     Active Substance: CRISABOROLE
     Indication: Psoriasis

REACTIONS (5)
  - Drug ineffective [Unknown]
  - Eye swelling [Unknown]
  - Ocular hyperaemia [Unknown]
  - Burning sensation [Unknown]
  - Off label use [Unknown]

NARRATIVE: CASE EVENT DATE: 20210601
